FAERS Safety Report 8171127-6 (Version None)
Quarter: 2012Q1

REPORT INFORMATION
  Report Type: 
  Country: None (occurrence: None)
  Receive Date: 20120228
  Receipt Date: 20120223
  Transmission Date: 20120608
  Serious: Yes (Other)
  Sender: FDA-Public Use
  Company Number: US-PFIZER INC-2011297137

PATIENT
  Sex: Male

DRUGS (1)
  1. LIPITOR [Suspect]
     Indication: BLOOD CHOLESTEROL INCREASED
     Dosage: 40 MG, 1X/DAY
     Route: 048

REACTIONS (5)
  - ATRIAL FIBRILLATION [None]
  - DIABETES MELLITUS [None]
  - BRAIN OPERATION [None]
  - CARDIAC DISORDER [None]
  - MYOCARDIAL INFARCTION [None]
